FAERS Safety Report 12109841 (Version 1)
Quarter: 2016Q1

REPORT INFORMATION
  Report Type: Spontaneous
  Country: US (occurrence: US)
  Receive Date: 20160224
  Receipt Date: 20160224
  Transmission Date: 20160526
  Serious: Yes (Other)
  Sender: FDA-Public Use
  Company Number: US-FRI-1000082169

PATIENT
  Sex: Female

DRUGS (1)
  1. VIIBRYD [Suspect]
     Active Substance: VILAZODONE HYDROCHLORIDE

REACTIONS (5)
  - Abnormal behaviour [Unknown]
  - Drug dose titration not performed [Recovered/Resolved]
  - Suicidal ideation [Unknown]
  - Nightmare [Unknown]
  - Abnormal dreams [Unknown]
